FAERS Safety Report 26137327 (Version 2)
Quarter: 2025Q4

REPORT INFORMATION
  Report Type: Spontaneous
  Country: EU (occurrence: EU)
  Receive Date: 20251209
  Receipt Date: 20251221
  Transmission Date: 20260117
  Serious: No
  Sender: NOVO NORDISK
  Company Number: EU-NOVOPROD-1580239

PATIENT
  Age: 44 Year
  Sex: Female
  Weight: 61 kg

DRUGS (1)
  1. OZEMPIC [Suspect]
     Active Substance: SEMAGLUTIDE
     Indication: Weight control
     Dosage: 1 MG, QW
     Route: 058

REACTIONS (4)
  - Dizziness [Unknown]
  - Tachycardia [Unknown]
  - Asthenia [Unknown]
  - Off label use [Unknown]
